FAERS Safety Report 4676598-5 (Version None)
Quarter: 2005Q2

REPORT INFORMATION
  Report Type: 
  Country: None (occurrence: None)
  Receive Date: 20050525
  Receipt Date: 20050512
  Transmission Date: 20051028
  Serious: Yes (Hospitalization)
  Sender: FDA-Public Use
  Company Number: 2003161491SE

PATIENT
  Age: 75 Year
  Sex: Male

DRUGS (1)
  1. EPIRUBICIN [Suspect]
     Indication: BLADDER NEOPLASM
     Dosage: 80 MG (FOR 1 HOUR)
     Route: 043
     Dates: start: 20020325, end: 20020325

REACTIONS (5)
  - ABDOMINAL PAIN [None]
  - BLADDER NEOPLASM [None]
  - CHEST PAIN [None]
  - CYSTITIS [None]
  - NEOPLASM RECURRENCE [None]
